FAERS Safety Report 7444427-2 (Version None)
Quarter: 2011Q2

REPORT INFORMATION
  Report Type: 
  Country: None (occurrence: None)
  Receive Date: 20110429
  Receipt Date: 20100330
  Transmission Date: 20111010
  Serious: No
  Sender: FDA-Public Use
  Company Number: US-BAYER-201019101NA

PATIENT
  Age: 22 Year
  Sex: Female
  Weight: 58.957 kg

DRUGS (5)
  1. ANTIBIOTICS FOR TOPICAL USE [Concomitant]
     Indication: VAGINAL MUCOSAL BLISTERING
  2. YAZ [Suspect]
     Indication: CONTRACEPTION
     Dosage: UNK
     Route: 048
     Dates: start: 20100214
  3. PLAN B [Suspect]
     Indication: POST COITAL CONTRACEPTION
     Dosage: 1.5 MG, ONCE
     Route: 048
     Dates: start: 20100101, end: 20100101
  4. ORTHO TRI-CYCLEN [Suspect]
     Indication: CONTRACEPTION
     Dosage: UNK
     Route: 048
  5. PLAN B [Suspect]
     Dosage: 1.5 MG, ONCE
     Route: 048
     Dates: start: 20100213, end: 20100213

REACTIONS (2)
  - NAUSEA [None]
  - MENSTRUATION DELAYED [None]
